FAERS Safety Report 9226750 (Version 2)
Quarter: 2013Q2

REPORT INFORMATION
  Report Type: Spontaneous
  Country: US (occurrence: US)
  Receive Date: 20130412
  Receipt Date: 20130417
  Transmission Date: 20140414
  Serious: No
  Sender: FDA-Public Use
  Company Number: US-009507513-1304USA004193

PATIENT
  Sex: 0

DRUGS (1)
  1. TRUSOPT [Suspect]
     Dosage: 10 ML, UNK

REACTIONS (4)
  - Ocular hyperaemia [Unknown]
  - Eye swelling [Unknown]
  - Eye pain [Unknown]
  - Product quality issue [Unknown]
